FAERS Safety Report 9457236 (Version 1)
Quarter: 2013Q3

REPORT INFORMATION
  Report Type: Spontaneous
  Country: US (occurrence: US)
  Receive Date: 20130814
  Receipt Date: 20130814
  Transmission Date: 20140515
  Serious: Yes (Other)
  Sender: FDA-Public Use
  Company Number: US-SHIRE-ALL1-2013-05518

PATIENT
  Age: 12 Year
  Sex: Male
  Weight: 44.44 kg

DRUGS (1)
  1. VYVANSE [Suspect]
     Indication: ATTENTION DEFICIT/HYPERACTIVITY DISORDER
     Dosage: 20 MG, 1X/DAY:QD
     Route: 048
     Dates: start: 20130808, end: 20130810

REACTIONS (2)
  - Seizure like phenomena [Recovered/Resolved]
  - Fatigue [Recovered/Resolved]
